FAERS Safety Report 9886602 (Version 2)
Quarter: 2014Q2

REPORT INFORMATION
  Report Type: Spontaneous
  Country: US (occurrence: US)
  Receive Date: 20140210
  Receipt Date: 20140516
  Transmission Date: 20141212
  Serious: Yes (Other)
  Sender: FDA-Public Use
  Company Number: US-INCYTE CORPORATION-2014IN000316

PATIENT
  Age: 71 Year
  Sex: Male
  Weight: 83 kg

DRUGS (5)
  1. JAKAFI [Suspect]
     Indication: MYELOFIBROSIS
     Dosage: 15 MG, BID
     Route: 048
     Dates: start: 201312
  2. AMIODARONE [Concomitant]
     Dosage: 200 MG, QD
  3. CARDIZEM                           /00489701/ [Concomitant]
     Dosage: 120 MG, QD
  4. PRILOSEC                           /00661201/ [Concomitant]
     Dosage: 20 MG, QD
  5. PRAVACHOL [Concomitant]
     Dosage: 20 MG, QD

REACTIONS (1)
  - Device related infection [Recovered/Resolved]
